FAERS Safety Report 9548259 (Version 1)
Quarter: 2013Q3

REPORT INFORMATION
  Report Type: Spontaneous
  Country: US (occurrence: None)
  Receive Date: 20130711
  Receipt Date: 20130711
  Transmission Date: 20140515
  Serious: Yes (Hospitalization, Other)
  Sender: FDA-Public Use
  Company Number: US-JNJFOC-20120508452

PATIENT
  Age: 77 Year
  Sex: Female
  Weight: 73.48 kg

DRUGS (1)
  1. DACOGEN (DECITABINE) LYOPHILIZED POWDER [Suspect]
     Indication: MYELODYSPLASTIC SYNDROME
     Dosage: 20 MG, 1 IN 6 WEEK, INTRAVENOUS
     Route: 042
     Dates: start: 20061208, end: 20061212

REACTIONS (3)
  - Thrombocytopenia [None]
  - Pulmonary embolism [None]
  - Leukopenia [None]
